FAERS Safety Report 8173291-1 (Version None)
Quarter: 2012Q1

REPORT INFORMATION
  Report Type: 
  Country: None (occurrence: None)
  Receive Date: 20120104
  Receipt Date: 20111102
  Transmission Date: 20120608
  Serious: No
  Sender: FDA-Public Use
  Company Number: 2011HGS-002566

PATIENT
  Age: 37 Year
  Sex: Female
  Weight: 52.1637 kg

DRUGS (7)
  1. BENLYSTA [Suspect]
     Indication: SYSTEMIC LUPUS ERYTHEMATOSUS
     Dosage: 10 MG/KG, 1 IN 2 WK, INTRAVENOUS; 10 MG/KG, 1 IN 2 WK, INTRAVENOUS DRIP
     Route: 042
     Dates: start: 20110921, end: 20110921
  2. PREDNISONE [Concomitant]
  3. PLAQUENIL (HYDROCXYCHLOROQUINE SULFATE) (HYDROXYCHLOROQUINE SULFATE) [Concomitant]
  4. VITAMIN D (EROGOCALCIFEROL) (EROGOCALCIFEROL) [Concomitant]
  5. FOLIC ACID [Concomitant]
  6. K-DUR (POTASSIUM CHLORIDE) (POTASSIUM CHLORIDE) [Concomitant]
  7. CALCIUM (CALCIUM) (CALCIUM) [Concomitant]

REACTIONS (4)
  - ABDOMINAL PAIN UPPER [None]
  - NAUSEA [None]
  - CHEST DISCOMFORT [None]
  - COLD SWEAT [None]
